FAERS Safety Report 9012666 (Version 1)
Quarter: 2013Q1

REPORT INFORMATION
  Report Type: Spontaneous
  Country: FR (occurrence: FR)
  Receive Date: 20130114
  Receipt Date: 20130114
  Transmission Date: 20140127
  Serious: Yes (Hospitalization)
  Sender: FDA-Public Use
  Company Number: FR-ASTRAZENECA-2013SE00789

PATIENT
  Age: 29232 Day
  Sex: Female
  Weight: 56 kg

DRUGS (8)
  1. HYTACAND [Suspect]
     Dosage: 16/12.5 MG/D, 1DF DAILY
     Route: 048
     Dates: end: 20121116
  2. OMEPRAZOLE [Suspect]
     Route: 048
  3. SEROPLEX [Suspect]
     Route: 048
     Dates: start: 20121106, end: 20121116
  4. LOXEN [Concomitant]
     Route: 048
  5. TENORMINE [Concomitant]
     Route: 048
  6. SIMVASTATINE [Concomitant]
     Route: 048
  7. GLICLAZIDE [Concomitant]
     Route: 048
  8. SERESTA [Concomitant]
     Route: 048

REACTIONS (5)
  - Hypokalaemia [Recovered/Resolved]
  - Polydipsia [Unknown]
  - Confusional state [Recovered/Resolved]
  - Vomiting [Unknown]
  - Hyponatraemia [Recovering/Resolving]
